FAERS Safety Report 14162551 (Version 4)
Quarter: 2017Q4

REPORT INFORMATION
  Report Type: Spontaneous
  Country: DE (occurrence: DE)
  Receive Date: 20171106
  Receipt Date: 20171220
  Transmission Date: 20180321
  Serious: Yes (Hospitalization)
  Sender: FDA-Public Use
  Company Number: DE-AUROBINDO-AUR-APL-2017-43214

PATIENT
  Age: 78 Year
  Sex: Female
  Weight: 83 kg

DRUGS (3)
  1. AMOXI-CLAVULAN AUROBINDO FILMTABLETTEN 875/125MG [Suspect]
     Active Substance: AMOXICILLIN\CLAVULANIC ACID
     Indication: ERYSIPELAS
     Dosage: 1 DF, TWO TIMES A DAY
     Route: 048
     Dates: start: 20171006, end: 20171008
  2. LERCANIDIPINE [Concomitant]
     Active Substance: LERCANIDIPINE
     Indication: HYPERTENSION
     Dosage: 10 MG, ONCE A DAY
     Route: 048
  3. VALSARTAN. [Concomitant]
     Active Substance: VALSARTAN
     Indication: HYPERTENSION
     Dosage: UNK, TWO TIMES A DAY
     Route: 048

REACTIONS (6)
  - Pruritus generalised [Recovered/Resolved]
  - Eyelid oedema [Recovered/Resolved]
  - Flushing [Recovered/Resolved]
  - Lip swelling [Recovered/Resolved]
  - Swelling face [Recovered/Resolved]
  - Rash [Recovered/Resolved]

NARRATIVE: CASE EVENT DATE: 20171008
